FAERS Safety Report 23484598 (Version 2)
Quarter: 2024Q3

REPORT INFORMATION
  Report Type: Spontaneous
  Country: CA (occurrence: CA)
  Receive Date: 20240206
  Receipt Date: 20240829
  Transmission Date: 20241017
  Serious: Yes (Other)
  Sender: ROCHE
  Company Number: CA-ROCHE-3501344

PATIENT
  Age: 74 Year
  Sex: Female

DRUGS (4)
  1. RITUXIMAB [Suspect]
     Active Substance: RITUXIMAB
     Indication: Granulomatosis with polyangiitis
     Route: 041
  2. ACETAMINOPHEN [Concomitant]
     Active Substance: ACETAMINOPHEN
     Route: 048
  3. DIPHENHYDRAMINE [Concomitant]
     Active Substance: DIPHENHYDRAMINE
     Route: 048
  4. METHYLPREDNISOLONE [Concomitant]
     Active Substance: METHYLPREDNISOLONE
     Route: 042

REACTIONS (10)
  - Agitation [Unknown]
  - Eye swelling [Unknown]
  - Fatigue [Unknown]
  - Headache [Unknown]
  - Inflammation [Unknown]
  - Laryngeal stenosis [Unknown]
  - Oropharyngeal discomfort [Unknown]
  - Rash macular [Unknown]
  - Swelling face [Unknown]
  - COVID-19 [Unknown]
